FAERS Safety Report 23048147 (Version 2)
Quarter: 2023Q4

REPORT INFORMATION
  Report Type: Report from Study
  Country: FR (occurrence: FR)
  Receive Date: 20231010
  Receipt Date: 20231031
  Transmission Date: 20240110
  Serious: Yes (Life-Threatening, Hospitalization)
  Sender: FDA-Public Use
  Company Number: FR-GILEAD-2023-0639321

PATIENT
  Age: 57 Year
  Sex: Male

DRUGS (7)
  1. BICTEGRAVIR\EMTRICITABINE\TENOFOVIR ALAFENAMIDE [Suspect]
     Active Substance: BICTEGRAVIR\EMTRICITABINE\TENOFOVIR ALAFENAMIDE
     Indication: HIV infection
     Dosage: UNK
     Route: 065
     Dates: end: 20201113
  2. CLINDAMYCIN [Suspect]
     Active Substance: CLINDAMYCIN
     Indication: Cerebral toxoplasmosis
     Dosage: UNK
     Route: 048
     Dates: start: 20201102, end: 20201113
  3. PYRIMETHAMINE [Concomitant]
     Active Substance: PYRIMETHAMINE
     Indication: Cerebral toxoplasmosis
     Dosage: 50 MG, QD
     Route: 048
     Dates: start: 20201102, end: 20201113
  4. PYRIMETHAMINE [Concomitant]
     Active Substance: PYRIMETHAMINE
     Dosage: 50 MG, QD
     Route: 048
     Dates: start: 20201118
  5. ATOVAQUONE [Concomitant]
     Active Substance: ATOVAQUONE
     Indication: Opportunistic infection
     Dosage: 1.5 G, BID
     Route: 048
     Dates: start: 20201118
  6. LEVETIRACETAM [Concomitant]
     Active Substance: LEVETIRACETAM
     Indication: Anaemia
     Dosage: 500 MG, BID
     Route: 048
     Dates: start: 20201021
  7. LEVETIRACETAM [Concomitant]
     Active Substance: LEVETIRACETAM
     Indication: Epilepsy
     Dosage: 25 MG, Q3WK
     Route: 048
     Dates: start: 20201102

REACTIONS (1)
  - Drug eruption [Recovered/Resolved]

NARRATIVE: CASE EVENT DATE: 20201112
